FAERS Safety Report 7076479-6 (Version None)
Quarter: 2010Q4

REPORT INFORMATION
  Report Type: 
  Country: None (occurrence: None)
  Receive Date: 20101101
  Receipt Date: 20101026
  Transmission Date: 20110411
  Serious: Yes (Other)
  Sender: FDA-Public Use
  Company Number: US-BRISTOL-MYERS SQUIBB COMPANY-15356447

PATIENT
  Age: 72 Year
  Sex: Male

DRUGS (4)
  1. GLUCOPHAGE [Suspect]
     Dates: start: 20100401
  2. GLIMEPIRIDE [Suspect]
     Indication: TYPE 2 DIABETES MELLITUS
     Dosage: INCREASED TO 2MG FROM SEP-2010
     Route: 048
  3. LANTUS [Suspect]
     Indication: TYPE 2 DIABETES MELLITUS
     Dosage: 1 DF = 40 UNITS
     Route: 058
     Dates: start: 20100401
  4. VICTOZA [Concomitant]
     Dates: start: 20100901

REACTIONS (1)
  - RENAL IMPAIRMENT [None]
